FAERS Safety Report 8889920 (Version 1)
Quarter: 2012Q4

REPORT INFORMATION
  Report Type: Report from Study
  Country: DE (occurrence: DE)
  Receive Date: 20121107
  Receipt Date: 20121107
  Transmission Date: 20130627
  Serious: No
  Sender: FDA-Public Use
  Company Number: PHHY2012DE100619

PATIENT
  Sex: Female

DRUGS (1)
  1. FTY 720 [Suspect]
     Dosage: 0.5 mg, QD
     Route: 048

REACTIONS (2)
  - Migraine [Not Recovered/Not Resolved]
  - Transaminases increased [Unknown]
